FAERS Safety Report 24984383 (Version 1)
Quarter: 2025Q1

REPORT INFORMATION
  Report Type: Spontaneous
  Country: US (occurrence: US)
  Receive Date: 20250219
  Receipt Date: 20250219
  Transmission Date: 20250408
  Serious: No
  Sender: ANI
  Company Number: US-ANIPHARMA-015601

PATIENT
  Age: 44 Year
  Sex: Female
  Weight: 72.6 kg

DRUGS (2)
  1. ESTROGENS, ESTERIFIED\METHYLTESTOSTERONE [Suspect]
     Active Substance: ESTROGENS, ESTERIFIED\METHYLTESTOSTERONE
     Indication: Menopause
     Route: 048
     Dates: start: 202409
  2. ESTROGENS, ESTERIFIED\METHYLTESTOSTERONE [Suspect]
     Active Substance: ESTROGENS, ESTERIFIED\METHYLTESTOSTERONE
     Indication: Blood oestrogen decreased
     Route: 048
     Dates: start: 202409

REACTIONS (2)
  - Drug ineffective [Unknown]
  - Product quality issue [Unknown]

NARRATIVE: CASE EVENT DATE: 20250106
